FAERS Safety Report 16327647 (Version 2)
Quarter: 2019Q3

REPORT INFORMATION
  Report Type: Spontaneous
  Country: US (occurrence: US)
  Receive Date: 20190517
  Receipt Date: 20190813
  Transmission Date: 20191004
  Serious: No
  Sender: FDA-Public Use
  Company Number: US-VIFOR (INTERNATIONAL) INC.-VIT-2019-04018

PATIENT
  Age: 74 Year
  Sex: Male
  Weight: 96.7 kg

DRUGS (4)
  1. RAMIPRIL. [Concomitant]
     Active Substance: RAMIPRIL
  2. EPLERENONE. [Concomitant]
     Active Substance: EPLERENONE
  3. VELTASSA [Suspect]
     Active Substance: PATIROMER
     Indication: BLOOD POTASSIUM INCREASED
     Dates: start: 20190405, end: 2019
  4. VELTASSA [Suspect]
     Active Substance: PATIROMER
     Dates: start: 2019, end: 2019

REACTIONS (5)
  - Constipation [Recovered/Resolved]
  - Discomfort [Recovered/Resolved]
  - Abdominal distension [Recovered/Resolved]
  - Flatulence [Recovered/Resolved]
  - Inappropriate schedule of product administration [Unknown]

NARRATIVE: CASE EVENT DATE: 201904
